FAERS Safety Report 22371344 (Version 1)
Quarter: 2023Q2

REPORT INFORMATION
  Report Type: Spontaneous
  Country: US (occurrence: US)
  Receive Date: 20230526
  Receipt Date: 20230526
  Transmission Date: 20230722
  Serious: No
  Sender: FDA-Public Use
  Company Number: US-AMGEN-USASP2023089731

PATIENT
  Age: 10 Year
  Sex: Female

DRUGS (1)
  1. PROCRIT [Suspect]
     Active Substance: ERYTHROPOIETIN
     Indication: Product used for unknown indication
     Dosage: UNK, 800 UNITES OF PROCRIT THREE TIMES A WEEK
     Route: 065

REACTIONS (3)
  - Therapy non-responder [Unknown]
  - Red blood cell count abnormal [Unknown]
  - Haemoglobin decreased [Unknown]
